FAERS Safety Report 7364560 (Version 5)
Quarter: 2014Q1

REPORT INFORMATION
  Report Type: Report from Study
  Country: US (occurrence: US)
  Receive Date: 20100423
  Receipt Date: 20140102
  Transmission Date: 20141002
  Serious: Yes (Death, Hospitalization, Other)
  Sender: FDA-Public Use
  Company Number: US-CELGENEUS-163-21880-10041010

PATIENT
  Age: 66 Year
  Sex: Male
  Weight: 65.7 kg

DRUGS (5)
  1. REVLIMID [Suspect]
     Indication: AMYLOIDOSIS
     Dosage: 10 MILLIGRAM
     Route: 048
     Dates: start: 20100126, end: 20100409
  2. MELPHALAN [Suspect]
     Indication: AMYLOIDOSIS
     Dosage: 12 MILLIGRAM
     Route: 048
     Dates: start: 20100126, end: 20100409
  3. DEXAMETHASONE [Suspect]
     Indication: AMYLOIDOSIS
     Route: 048
     Dates: start: 20100126, end: 20100409
  4. LASIX [Concomitant]
     Indication: PRODUCT USED FOR UNKNOWN INDICATION
     Route: 065
  5. ALDACTONE [Concomitant]
     Indication: PRODUCT USED FOR UNKNOWN INDICATION
     Route: 065

REACTIONS (2)
  - Sudden cardiac death [Fatal]
  - Hyponatraemia [Not Recovered/Not Resolved]
